FAERS Safety Report 7046378-4 (Version None)
Quarter: 2010Q4

REPORT INFORMATION
  Report Type: 
  Country: None (occurrence: None)
  Receive Date: 20101014
  Receipt Date: 20101007
  Transmission Date: 20110411
  Serious: Yes (Hospitalization)
  Sender: FDA-Public Use
  Company Number: JP-ROCHE-569408

PATIENT
  Sex: Female
  Weight: 55 kg

DRUGS (13)
  1. TOCILIZUMAB [Suspect]
     Indication: RHEUMATOID ARTHRITIS
     Route: 041
     Dates: start: 20080305, end: 20080305
  2. TOCILIZUMAB [Suspect]
     Route: 041
     Dates: start: 20080402, end: 20080402
  3. TOCILIZUMAB [Suspect]
     Route: 041
     Dates: start: 20080508, end: 20080508
  4. TOCILIZUMAB [Suspect]
     Route: 041
     Dates: start: 20080611, end: 20080611
  5. TOCILIZUMAB [Suspect]
     Route: 041
     Dates: start: 20080707, end: 20080707
  6. TOCILIZUMAB [Suspect]
     Route: 041
     Dates: start: 20080804, end: 20080804
  7. TOCILIZUMAB [Suspect]
     Route: 041
     Dates: start: 20080901, end: 20080901
  8. TOCILIZUMAB [Suspect]
     Route: 041
     Dates: start: 20081006, end: 20081006
  9. TOCILIZUMAB [Suspect]
     Route: 041
     Dates: start: 20081105
  10. PREDNISOLONE [Concomitant]
     Route: 048
  11. CYTOTEC [Concomitant]
     Dosage: DOSE FORM: PERORAL AGENT
     Route: 048
  12. OMEPRAL [Concomitant]
     Route: 048
  13. LOXONIN [Concomitant]
     Route: 048

REACTIONS (1)
  - SUPRAVENTRICULAR TACHYCARDIA [None]
